FAERS Safety Report 8789869 (Version 1)
Quarter: 2012Q4

REPORT INFORMATION
  Report Type: 
  Country: CN (occurrence: CN)
  Receive Date: 20120917
  Receipt Date: 20120917
  Transmission Date: 20130627
  Serious: Yes (Other)
  Sender: FDA-Public Use
  Company Number: CN-PFIZER INC-2012224466

PATIENT
  Age: 73 Year
  Sex: Male

DRUGS (1)
  1. TAZOCIN [Suspect]
     Indication: ANTI-INFECTIVE THERAPY
     Dosage: 4.5 g, 3x/day
     Route: 041
     Dates: start: 20111030, end: 20111106

REACTIONS (2)
  - Renal impairment [Recovering/Resolving]
  - Abdominal distension [Recovering/Resolving]
